FAERS Safety Report 4444749-3 (Version None)
Quarter: 2004Q3

REPORT INFORMATION
  Report Type: 
  Country: None (occurrence: None)
  Receive Date: 20040903
  Receipt Date: 20040819
  Transmission Date: 20050211
  Serious: Yes (Hospitalization)
  Sender: FDA-Public Use
  Company Number: 04P-087-0271280-00

PATIENT
  Age: 40 Year
  Sex: Male

DRUGS (3)
  1. KALETRA [Suspect]
     Indication: HIV INFECTION
     Dosage: 8 CAPSULE, 1 IN 1 D, PER ORAL
     Route: 048
     Dates: start: 20021001, end: 20030701
  2. STAVUDINE [Suspect]
     Indication: HIV INFECTION
     Dosage: 4 DOSAGE FORMS, 1 IN 1 D, PER ORAL
     Route: 048
     Dates: start: 20021001, end: 20030701
  3. LAMIVUDINE [Suspect]
     Indication: HIV INFECTION
     Dosage: 300 MG, 1 IN 1 D, PER ORAL
     Route: 048
     Dates: start: 20021001, end: 20030701

REACTIONS (4)
  - BLOOD LACTIC ACID INCREASED [None]
  - GUILLAIN-BARRE SYNDROME [None]
  - HYPOAESTHESIA [None]
  - MUSCULAR WEAKNESS [None]
